FAERS Safety Report 8816981 (Version 1)
Quarter: 2012Q4

REPORT INFORMATION
  Report Type: Spontaneous
  Country: NL (occurrence: None)
  Receive Date: 20121002
  Receipt Date: 20121002
  Transmission Date: 20130627
  Serious: Yes (Other)
  Sender: FDA-Public Use
  Company Number: 2010EU006662

PATIENT
  Sex: Female

DRUGS (2)
  1. VESICARE [Suspect]
     Indication: OVERACTIVE BLADDER
     Route: 048
  2. VESICARE [Suspect]
     Indication: MICTURITION URGENCY
     Route: 048

REACTIONS (1)
  - Intestinal obstruction [None]
